FAERS Safety Report 9174206 (Version 1)
Quarter: 2013Q1

REPORT INFORMATION
  Report Type: Spontaneous
  Country: TH (occurrence: TH)
  Receive Date: 20130320
  Receipt Date: 20130320
  Transmission Date: 20140127
  Serious: Yes (Death, Hospitalization)
  Sender: FDA-Public Use
  Company Number: PHHY2012TH128127

PATIENT
  Age: 73 Year
  Sex: Male

DRUGS (2)
  1. ZOMETA [Suspect]
     Indication: METASTASES TO BONE
     Dosage: 4 MG, PER TIME PER MONTH
     Route: 041
  2. VELCADE [Suspect]
     Dosage: UNK UKN, UNK

REACTIONS (7)
  - Pneumonia [Fatal]
  - Speech disorder [Unknown]
  - Gait disturbance [Unknown]
  - Pallor [Unknown]
  - Hypophagia [Unknown]
  - Bone disorder [Unknown]
  - Dyspnoea [Unknown]
